FAERS Safety Report 10088352 (Version 1)
Quarter: 2014Q2

REPORT INFORMATION
  Report Type: Spontaneous
  Country: US (occurrence: US)
  Receive Date: 20140421
  Receipt Date: 20140421
  Transmission Date: 20141212
  Serious: No
  Sender: FDA-Public Use
  Company Number: US-BIOGENIDEC-2014BI030785

PATIENT
  Sex: Female

DRUGS (1)
  1. TECFIDERA [Suspect]
     Indication: RELAPSING-REMITTING MULTIPLE SCLEROSIS
     Dates: start: 20130801

REACTIONS (6)
  - Ill-defined disorder [Unknown]
  - Muscular weakness [Unknown]
  - Arthralgia [Unknown]
  - Gait disturbance [Unknown]
  - Central nervous system lesion [Unknown]
  - Multiple sclerosis [Unknown]
